FAERS Safety Report 20385604 (Version 2)
Quarter: 2022Q1

REPORT INFORMATION
  Report Type: Spontaneous
  Country: US (occurrence: US)
  Receive Date: 20220127
  Receipt Date: 20220221
  Transmission Date: 20220423
  Serious: Yes (Hospitalization, Other)
  Sender: FDA-Public Use
  Company Number: US-009507513-2201USA005029

PATIENT
  Age: 71 Year
  Sex: Male

DRUGS (5)
  1. KEYTRUDA [Suspect]
     Active Substance: PEMBROLIZUMAB
     Indication: Malignant melanoma
     Dosage: 200 MILLIGRAM, Q3W
     Dates: start: 20171221, end: 20180111
  2. KEYTRUDA [Suspect]
     Active Substance: PEMBROLIZUMAB
     Dosage: 200 MILLIGRAM, Q3W
     Dates: start: 20180131, end: 20180131
  3. KEYTRUDA [Suspect]
     Active Substance: PEMBROLIZUMAB
     Dosage: 200 MILLIGRAM, Q3W
     Dates: start: 20180222, end: 20180222
  4. KEYTRUDA [Suspect]
     Active Substance: PEMBROLIZUMAB
     Dosage: 200 MILLIGRAM, Q3W
     Dates: start: 20180315, end: 20180517
  5. KEYTRUDA [Suspect]
     Active Substance: PEMBROLIZUMAB
     Dosage: 200 MILLIGRAM, Q3W
     Dates: start: 20181003, end: 20181114

REACTIONS (11)
  - Cholecystitis [Unknown]
  - Immune-mediated endocrinopathy [Unknown]
  - Transaminases increased [Unknown]
  - Diabetes mellitus inadequate control [Unknown]
  - Immune-mediated hypophysitis [Unknown]
  - Immune-mediated hypothyroidism [Unknown]
  - Immune-mediated lung disease [Unknown]
  - Adrenal insufficiency [Unknown]
  - Immune-mediated dermatitis [Unknown]
  - Inappropriate schedule of product administration [Unknown]
  - Inappropriate schedule of product administration [Unknown]

NARRATIVE: CASE EVENT DATE: 20180101
